FAERS Safety Report 12468192 (Version 4)
Quarter: 2016Q3

REPORT INFORMATION
  Report Type: Spontaneous
  Country: DE (occurrence: DE)
  Receive Date: 20160615
  Receipt Date: 20160720
  Transmission Date: 20161109
  Serious: Yes (Life-Threatening, Hospitalization, Other)
  Sender: FDA-Public Use
  Company Number: PHHY2016DE024955

PATIENT
  Age: 18 Year
  Sex: Female
  Weight: 53 kg

DRUGS (10)
  1. REVOLADE [Suspect]
     Active Substance: ELTROMBOPAG
     Dosage: 25 MG, QD (0 0 1)
     Route: 048
     Dates: start: 20160201, end: 20160205
  2. PREDNISOLONE. [Concomitant]
     Active Substance: PREDNISOLONE
     Indication: IMMUNE THROMBOCYTOPENIC PURPURA
     Dosage: 20 MG, QD (1 0 0)
     Route: 065
     Dates: start: 20160131
  3. NOVAMINSULFON [Concomitant]
     Active Substance: METAMIZOLE
     Indication: PRODUCT USED FOR UNKNOWN INDICATION
     Dosage: 20 DRP, TID
     Route: 065
  4. REVOLADE [Suspect]
     Active Substance: ELTROMBOPAG
     Dosage: 50 MG, QD
     Route: 048
     Dates: start: 20160124, end: 20160131
  5. DECORTIN [Concomitant]
     Active Substance: PREDNISONE
     Indication: IMMUNE THROMBOCYTOPENIC PURPURA
     Dosage: 30 MG UP TO 50 MG, UNK
     Route: 048
     Dates: start: 20160108, end: 20160112
  6. NOVALGIN [Concomitant]
     Active Substance: METAMIZOLE SODIUM
     Indication: PAIN
     Dosage: 20 DRP, TID (OCCASIONALLY ALSO 30 DROPS)
     Route: 048
  7. ORTOTON [Concomitant]
     Indication: MUSCLE TIGHTNESS
     Dosage: 300 MG, (1 2 2)
     Route: 048
     Dates: start: 20160129, end: 20160131
  8. REVOLADE [Suspect]
     Active Substance: ELTROMBOPAG
     Indication: IMMUNE THROMBOCYTOPENIC PURPURA
     Dosage: 50 MG, QD (0 0 1)
     Route: 048
     Dates: start: 20160108, end: 20160113
  9. ORTOTON [Concomitant]
     Dosage: UNK
     Route: 042
  10. DIPIPERON [Concomitant]
     Active Substance: PIPAMPERONE
     Indication: PRODUCT USED FOR UNKNOWN INDICATION
     Dosage: 10 MG, QHS
     Route: 065
     Dates: start: 20160131

REACTIONS (21)
  - Pneumonia [Unknown]
  - White blood cell count increased [Recovered/Resolved]
  - Inflammation [Recovered/Resolved]
  - Status migrainosus [Recovered/Resolved]
  - Musculoskeletal pain [Unknown]
  - Neck pain [Recovering/Resolving]
  - Thrombocytosis [Unknown]
  - Pleurisy [Unknown]
  - Migraine [Unknown]
  - Blood urea increased [Recovered/Resolved]
  - Haemoglobin decreased [Recovered/Resolved]
  - Back pain [Recovering/Resolving]
  - Pulmonary embolism [Recovering/Resolving]
  - Hepatic enzyme increased [Unknown]
  - Platelet count decreased [Recovered/Resolved]
  - Intracranial venous sinus thrombosis [Recovering/Resolving]
  - Headache [Unknown]
  - Platelet count increased [Unknown]
  - Feeling abnormal [Recovering/Resolving]
  - Lung infiltration [Unknown]
  - Chest pain [Recovering/Resolving]

NARRATIVE: CASE EVENT DATE: 20160113
